FAERS Safety Report 9123137 (Version 1)
Quarter: 2013Q1

REPORT INFORMATION
  Report Type: Spontaneous
  Country: US (occurrence: US)
  Receive Date: 20130227
  Receipt Date: 20130227
  Transmission Date: 20140127
  Serious: No
  Sender: FDA-Public Use
  Company Number: US-PFIZER INC-2013068582

PATIENT
  Age: 52 Year
  Sex: Female
  Weight: 89.8 kg

DRUGS (3)
  1. CHANTIX [Suspect]
     Indication: SMOKING CESSATION THERAPY
     Dosage: 0.5 MG, 1X/DAY
     Route: 048
     Dates: start: 20130223, end: 20130223
  2. NEURONTIN [Concomitant]
     Dosage: 300 MG, 3X/DAY
  3. LEXAPRO [Concomitant]
     Dosage: 10 MG, 2X/DAY

REACTIONS (9)
  - Malaise [Not Recovered/Not Resolved]
  - Nausea [Not Recovered/Not Resolved]
  - Gastroenteritis viral [Not Recovered/Not Resolved]
  - Vomiting [Not Recovered/Not Resolved]
  - Paraesthesia [Recovering/Resolving]
  - Feeling abnormal [Recovering/Resolving]
  - Somnolence [Recovering/Resolving]
  - Bedridden [Not Recovered/Not Resolved]
  - Balance disorder [Not Recovered/Not Resolved]
